FAERS Safety Report 8975255 (Version 3)
Quarter: 2012Q4

REPORT INFORMATION
  Report Type: Report from Study
  Country: DE (occurrence: DE)
  Receive Date: 20121218
  Receipt Date: 20121228
  Transmission Date: 20130627
  Serious: Yes (Hospitalization)
  Sender: FDA-Public Use
  Company Number: DE-AMGEN-DEUCT2012080625

PATIENT
  Age: 76 Year
  Sex: Female
  Weight: 55 kg

DRUGS (10)
  1. ETANERCEPT [Suspect]
     Indication: RHEUMATOID ARTHRITIS
     Dosage: 25 mg, 2 times/wk
     Route: 058
     Dates: start: 20111027, end: 20120330
  2. ETANERCEPT [Suspect]
     Dosage: 25 mg, 2x/week
     Route: 058
     Dates: start: 20120418
  3. METHOTREXATE SODIUM [Suspect]
     Indication: RHEUMATOID ARTHRITIS
     Dosage: 15 mg, weekly
     Route: 048
     Dates: start: 201107
  4. PREDNISOLONE [Concomitant]
     Dosage: 5 mg, 2x/day (in the morning and in the evening)
     Dates: start: 201106
  5. PREDNISOLONE [Concomitant]
     Dosage: 5 mg, 1x/day
     Route: 048
     Dates: start: 201201
  6. FOLSAN [Concomitant]
     Dosage: 5 mg, weekly
     Route: 048
     Dates: start: 201107
  7. RESTEX [Concomitant]
     Indication: RESTLESS LEGS SYNDROME
     Dosage: 2.5 DF, 1x/day (in the evening)
     Route: 048
     Dates: start: 2006
  8. PRAMIPEXOLE [Concomitant]
     Indication: RESTLESS LEGS SYNDROME
     Dosage: 1 DF, 1x/day (in the evening)
     Dates: start: 2006
  9. CALCIUM PLUS VITAMIN D [Concomitant]
     Dosage: 1 DF, 1x/day (in the morning)
     Dates: start: 201106
  10. DICLO                              /00372301/ [Concomitant]
     Dosage: 75 mg, as needed
     Dates: start: 201106

REACTIONS (1)
  - Haematuria [Recovered/Resolved]
